FAERS Safety Report 8923012 (Version 1)
Quarter: 2012Q4

REPORT INFORMATION
  Report Type: Spontaneous
  Country: US (occurrence: None)
  Receive Date: 20121115
  Receipt Date: 20121115
  Transmission Date: 20130627
  Serious: Yes (Hospitalization, Other)
  Sender: FDA-Public Use
  Company Number: 2012-3077

PATIENT
  Age: 39 Year
  Sex: Female
  Weight: 63.5 kg

DRUGS (5)
  1. SOMATULINE DEPOT [Suspect]
     Indication: ACROMEGALY
     Dosage: 120 mg  (120 mg, 1 in 28 D),  Subcutaneous
     Route: 058
     Dates: start: 20120402
  2. BYETTA (ANTI-DIABETICS) [Concomitant]
  3. METFORMIN (METFORMIN) [Concomitant]
  4. SYNTHROID (LEVOTHYROXINE SODIUM) [Concomitant]
  5. LANTUS (INSULIN GLARGINE) [Concomitant]

REACTIONS (4)
  - Pancreatitis [None]
  - Injection site pain [None]
  - Carcinoembryonic antigen increased [None]
  - Precancerous cells present [None]
